FAERS Safety Report 25323843 (Version 1)
Quarter: 2025Q2

REPORT INFORMATION
  Report Type: Spontaneous
  Country: US (occurrence: US)
  Receive Date: 20250516
  Receipt Date: 20250516
  Transmission Date: 20250717
  Serious: No
  Sender: Hibrow Healthcare
  Company Number: US-Hibrow Healthcare Private Ltd-2176862

PATIENT
  Sex: Female

DRUGS (4)
  1. BACLOFEN [Suspect]
     Active Substance: BACLOFEN
     Indication: Endometriosis
  2. TYLENOL [Concomitant]
     Active Substance: ACETAMINOPHEN
  3. OXYCODONE [Concomitant]
     Active Substance: OXYCODONE
  4. IBUPROFEN [Concomitant]
     Active Substance: IBUPROFEN

REACTIONS (1)
  - Drug ineffective for unapproved indication [Unknown]
